FAERS Safety Report 20807466 (Version 1)
Quarter: 2022Q2

REPORT INFORMATION
  Report Type: Spontaneous
  Country: DE (occurrence: DE)
  Receive Date: 20220510
  Receipt Date: 20220510
  Transmission Date: 20220721
  Serious: No
  Sender: FDA-Public Use
  Company Number: DE-ALKEM LABORATORIES LIMITED-DE-ALKEM-2022-00845

PATIENT
  Sex: Male

DRUGS (2)
  1. PREGABALIN [Suspect]
     Active Substance: PREGABALIN
     Indication: Product used for unknown indication
     Dosage: UNK
     Route: 065
     Dates: start: 202111, end: 202201
  2. IBUPROFEN [Concomitant]
     Active Substance: IBUPROFEN
     Indication: Product used for unknown indication
     Dosage: UNK
     Route: 065

REACTIONS (9)
  - Irritability [Unknown]
  - Fall [Unknown]
  - Loss of libido [Unknown]
  - Headache [Unknown]
  - Somnolence [Unknown]
  - Language disorder [Unknown]
  - Memory impairment [Unknown]
  - Disorientation [Unknown]
  - Balance disorder [Unknown]

NARRATIVE: CASE EVENT DATE: 20211101
